FAERS Safety Report 24550066 (Version 1)
Quarter: 2024Q4

REPORT INFORMATION
  Report Type: Spontaneous
  Country: US (occurrence: US)
  Receive Date: 20241025
  Receipt Date: 20241025
  Transmission Date: 20250115
  Serious: No
  Sender: BIOVITRUM
  Company Number: US-BIOVITRUM-2024-US-013634

PATIENT
  Age: 7 Year
  Sex: Male

DRUGS (1)
  1. ANAKINRA [Suspect]
     Active Substance: ANAKINRA
     Indication: C3 glomerulopathy
     Dosage: DAILY
     Route: 058

REACTIONS (3)
  - Injection site reaction [Unknown]
  - Off label use [Recovered/Resolved]
  - Proteinuria [Unknown]
